FAERS Safety Report 15761237 (Version 1)
Quarter: 2018Q4

REPORT INFORMATION
  Report Type: Spontaneous
  Country: JP (occurrence: JP)
  Receive Date: 20181226
  Receipt Date: 20181226
  Transmission Date: 20190205
  Serious: Yes (Death)
  Sender: FDA-Public Use
  Company Number: PHHY2012JP009322

PATIENT
  Age: 66 Year
  Sex: Female

DRUGS (1)
  1. IMATINIB. [Suspect]
     Active Substance: IMATINIB MESYLATE
     Indication: CHRONIC MYELOID LEUKAEMIA
     Dosage: 400 MG, QD
     Route: 048
     Dates: start: 20060725, end: 20061006

REACTIONS (3)
  - Toxic epidermal necrolysis [Fatal]
  - Rash [Recovered/Resolved]
  - Blister [Fatal]

NARRATIVE: CASE EVENT DATE: 20060811
